FAERS Safety Report 5542939-X (Version None)
Quarter: 2007Q4

REPORT INFORMATION
  Report Type: 
  Country: None (occurrence: None)
  Receive Date: 20071210
  Receipt Date: 20071128
  Transmission Date: 20080405
  Serious: Yes (Other)
  Sender: FDA-Public Use
  Company Number: SE-PFIZER INC-2007100296

PATIENT
  Age: 49 Year
  Sex: Female

DRUGS (3)
  1. LYRICA [Suspect]
     Dosage: DAILY DOSE:25MG
     Route: 048
     Dates: start: 20070913, end: 20071008
  2. MIRTAZAPINE [Concomitant]
     Route: 048
  3. FLUPENTIXOL [Concomitant]
     Route: 048

REACTIONS (4)
  - ANXIETY [None]
  - DEPRESSION [None]
  - RETINITIS PIGMENTOSA [None]
  - VISUAL ACUITY REDUCED [None]
